FAERS Safety Report 6544694-3 (Version None)
Quarter: 2010Q1

REPORT INFORMATION
  Report Type: 
  Country: None (occurrence: None)
  Receive Date: 20100121
  Receipt Date: 20100119
  Transmission Date: 20100710
  Serious: Yes (Death)
  Sender: FDA-Public Use
  Company Number: US-ELI_LILLY_AND_COMPANY-US200912006250

PATIENT
  Sex: Male
  Weight: 57.596 kg

DRUGS (4)
  1. PEMETREXED [Suspect]
     Indication: NON-SMALL CELL LUNG CANCER
     Dosage: 400 MG/M2, OTHER
     Route: 042
     Dates: start: 20090811, end: 20091015
  2. FOLIC ACID [Concomitant]
     Indication: VITAMIN SUPPLEMENTATION
     Dates: start: 20090806
  3. VITAMIN B-12 [Concomitant]
  4. DEXAMETHASONE [Concomitant]
     Dates: start: 20090806

REACTIONS (1)
  - MALIGNANT NEOPLASM PROGRESSION [None]
